FAERS Safety Report 11130698 (Version 2)
Quarter: 2015Q2

REPORT INFORMATION
  Report Type: Report from Study
  Country: AU (occurrence: AU)
  Receive Date: 20150522
  Receipt Date: 20150528
  Transmission Date: 20150821
  Serious: Yes (Hospitalization)
  Sender: FDA-Public Use
  Company Number: AU-ROCHE-1571770

PATIENT
  Age: 47 Year
  Sex: Male
  Weight: 98 kg

DRUGS (26)
  1. PARACETAMOL [Concomitant]
     Active Substance: ACETAMINOPHEN
     Indication: CANCER PAIN
     Route: 048
     Dates: end: 20130306
  2. OXYMETAZOLINE HYDROCHLORIDE. [Concomitant]
     Active Substance: OXYMETAZOLINE HYDROCHLORIDE
     Indication: ACUTE SINUSITIS
     Route: 065
     Dates: start: 20130913, end: 20131004
  3. ZOFRAN [Concomitant]
     Active Substance: ONDANSETRON HYDROCHLORIDE
     Indication: VOMITING
     Dosage: WAFERS
     Route: 065
     Dates: start: 20140108
  4. RANITIDINE [Concomitant]
     Active Substance: RANITIDINE\RANITIDINE HYDROCHLORIDE
     Indication: GASTROOESOPHAGEAL REFLUX DISEASE
     Route: 065
     Dates: start: 20150101
  5. OXYNORM [Concomitant]
     Active Substance: OXYCODONE HYDROCHLORIDE
     Indication: PAIN
     Route: 065
     Dates: start: 20131016
  6. OXYNORM [Concomitant]
     Active Substance: OXYCODONE HYDROCHLORIDE
     Dosage: 2 TABS TWICE DAILY
     Route: 048
     Dates: start: 20130306
  7. KEFLEX [Concomitant]
     Active Substance: CEPHALEXIN
     Indication: ACUTE SINUSITIS
  8. METRONIDAZOLE. [Concomitant]
     Active Substance: METRONIDAZOLE
     Indication: TOOTH INFECTION
     Route: 065
     Dates: start: 20140323, end: 20140422
  9. DOXYCYCLINE. [Concomitant]
     Active Substance: DOXYCYCLINE
     Route: 065
     Dates: start: 20140622
  10. VISMODEGIB [Suspect]
     Active Substance: VISMODEGIB
     Indication: BASAL CELL CARCINOMA
     Dosage: LAST DOSE PRIOR TO SAE: 28/APR/2015
     Route: 048
     Dates: start: 20121213
  11. PARACETAMOL [Concomitant]
     Active Substance: ACETAMINOPHEN
     Route: 065
     Dates: start: 20130306
  12. ASPIRIN. [Concomitant]
     Active Substance: ASPIRIN
     Indication: CEREBROVASCULAR ACCIDENT
     Route: 065
     Dates: start: 200412
  13. ZOLOFT [Concomitant]
     Active Substance: SERTRALINE HYDROCHLORIDE
     Indication: DEPRESSION
     Route: 048
     Dates: start: 200712, end: 20130501
  14. CLINDATECH [Concomitant]
     Indication: FOLLICULITIS
     Dosage: 1 PATCH BD
     Route: 065
     Dates: start: 20130724
  15. CEFAZOLIN [Concomitant]
     Active Substance: CEFAZOLIN
     Indication: ACUTE SINUSITIS
     Dosage: 2 GMS TDS IV
     Route: 042
     Dates: start: 20130911, end: 20130913
  16. DOXYCYCLINE. [Concomitant]
     Active Substance: DOXYCYCLINE
     Route: 065
     Dates: start: 20150211
  17. DUROGESIC [Concomitant]
     Active Substance: FENTANYL
     Indication: CANCER PAIN
     Dosage: 1 PATCH EVERY 3RD DAY
     Route: 062
     Dates: start: 201210
  18. FERRO-GRADUMET [Concomitant]
     Active Substance: FERROUS SULFATE\FERROUS SULFATE, DRIED
     Indication: ANAEMIA
     Dosage: ONCE DAILY
     Route: 065
     Dates: start: 20131113, end: 20140401
  19. ZOLOFT [Concomitant]
     Active Substance: SERTRALINE HYDROCHLORIDE
     Indication: MOOD SWINGS
     Route: 048
     Dates: start: 20130501, end: 20130902
  20. ZOFRAN [Concomitant]
     Active Substance: ONDANSETRON HYDROCHLORIDE
     Indication: NAUSEA
     Dosage: 8 MG/TWICE A DAY
     Route: 065
     Dates: start: 20140108
  21. DOXYCYCLINE. [Concomitant]
     Active Substance: DOXYCYCLINE
     Indication: SINUSITIS
     Route: 065
     Dates: start: 20140422, end: 20140428
  22. ABBOCILLIN-VK [Concomitant]
     Indication: SINUSITIS
     Dosage: 2 TABS DAILY
     Route: 048
     Dates: start: 20130529, end: 20130608
  23. CEFALEXIN [Concomitant]
     Active Substance: CEPHALEXIN
     Indication: ACUTE SINUSITIS
     Route: 065
     Dates: start: 20130913, end: 20131004
  24. ZOLOFT [Concomitant]
     Active Substance: SERTRALINE HYDROCHLORIDE
     Route: 065
     Dates: start: 20130902, end: 20140901
  25. OXYNORM [Concomitant]
     Active Substance: OXYCODONE HYDROCHLORIDE
     Indication: CANCER PAIN
     Dosage: 1 TAB DAILY
     Route: 048
     Dates: end: 20130306
  26. KEFLEX [Concomitant]
     Active Substance: CEPHALEXIN
     Indication: CELLULITIS
     Dosage: 1 TAB TDS
     Route: 048
     Dates: start: 20130703, end: 20130713

REACTIONS (1)
  - Orbital infection [Recovered/Resolved]

NARRATIVE: CASE EVENT DATE: 20150428
